FAERS Safety Report 4353362-8 (Version None)
Quarter: 2004Q2

REPORT INFORMATION
  Report Type: 
  Country: None (occurrence: None)
  Receive Date: 20040430
  Receipt Date: 20040420
  Transmission Date: 20050107
  Serious: Yes (Hospitalization)
  Sender: FDA-Public Use
  Company Number: US-JNJFOC-20040404981

PATIENT
  Sex: Male
  Weight: 1.9958 kg

DRUGS (5)
  1. ORTHO TRI-CYCLEN LO [Suspect]
     Indication: MATERNAL DRUGS AFFECTING FOETUS
     Dosage: ORAL
     Route: 048
     Dates: start: 20021202, end: 20030610
  2. XANAX [Concomitant]
  3. PRENATAL VITAMINS (PRENATAL VITAMINS) [Concomitant]
  4. PENICILLIN [Concomitant]
  5. BETAMETHAZONE (BETAMETHASONE) [Concomitant]

REACTIONS (3)
  - BREECH PRESENTATION [None]
  - DRUG EXPOSURE DURING PREGNANCY [None]
  - PREMATURE BABY [None]
